FAERS Safety Report 7630451-3 (Version None)
Quarter: 2011Q3

REPORT INFORMATION
  Report Type: 
  Country: None (occurrence: None)
  Receive Date: 20110722
  Receipt Date: 20110715
  Transmission Date: 20111222
  Serious: Yes (Hospitalization)
  Sender: FDA-Public Use
  Company Number: US-US-EMD SERONO, INC.-7071561

PATIENT
  Sex: Female

DRUGS (2)
  1. REBIF [Suspect]
     Indication: MULTIPLE SCLEROSIS
     Route: 058
     Dates: start: 20080810
  2. ENALAPRIL MALEATE [Suspect]
     Dates: end: 20110501

REACTIONS (5)
  - HEART RATE ABNORMAL [None]
  - SWOLLEN TONGUE [None]
  - TONGUE BITING [None]
  - DYSPNOEA [None]
  - DYSPHONIA [None]
